FAERS Safety Report 9041762 (Version 1)
Quarter: 2013Q1

REPORT INFORMATION
  Report Type: Report from Study
  Country: US (occurrence: US)
  Receive Date: 20130129
  Receipt Date: 20130129
  Transmission Date: 20140127
  Serious: No
  Sender: FDA-Public Use
  Company Number: US-ABBOTT-12P-163-0903432-00

PATIENT
  Age: 65 Year
  Sex: Female

DRUGS (22)
  1. HUMIRA 40 MG/0.8 ML PEN [Suspect]
     Indication: PSORIASIS
     Route: 058
     Dates: start: 201112
  2. GLIMEPIRIDE [Concomitant]
     Indication: DIABETES MELLITUS
  3. METFORMIN [Concomitant]
     Indication: DIABETES MELLITUS
  4. LEVEMIR [Concomitant]
     Indication: DIABETES MELLITUS
     Dosage: AT BEDTIME
  5. ULORIC [Concomitant]
     Indication: GOUT
  6. ALDACTAZIDE [Concomitant]
     Indication: HYPERTENSION
     Dosage: 25/25 MG TWICE DAILY
  7. LOPRESSOR [Concomitant]
     Indication: HYPERTENSION
  8. COZAAR [Concomitant]
     Indication: RENAL DISORDER
  9. COZAAR [Concomitant]
     Indication: PROPHYLAXIS
  10. COZAAR [Concomitant]
     Indication: HYPERTENSION
  11. LASIX [Concomitant]
     Indication: DIURETIC THERAPY
  12. ASPIRIN [Concomitant]
     Indication: CARDIAC DISORDER
  13. ASPIRIN [Concomitant]
     Indication: PROPHYLAXIS
  14. PROMETRIUM [Concomitant]
     Indication: PROPHYLAXIS
  15. PROMETRIUM [Concomitant]
     Indication: NEOPLASM MALIGNANT
  16. NEXIUM [Concomitant]
     Indication: GASTROOESOPHAGEAL REFLUX DISEASE
  17. ADVIL [Concomitant]
     Indication: PAIN
     Dosage: TWICE DAILY AS NEEDED
  18. GABAPENTIN [Concomitant]
     Indication: NEURALGIA
  19. GLUCOSAMIDE DOUBLE STRENGTH [Concomitant]
     Indication: ARTHROPATHY
  20. CALCIUM +VIT D [Concomitant]
     Indication: VITAMIN SUPPLEMENTATION
  21. VITAMIN D [Concomitant]
     Indication: VITAMIN SUPPLEMENTATION
  22. VAGIFEM [Concomitant]
     Indication: VULVOVAGINAL DRYNESS

REACTIONS (9)
  - Laryngitis [Recovering/Resolving]
  - Oropharyngeal pain [Recovering/Resolving]
  - Bedridden [Recovering/Resolving]
  - Malaise [Recovering/Resolving]
  - Asthenia [Recovering/Resolving]
  - Nasal congestion [Recovering/Resolving]
  - Sensation of foreign body [Recovering/Resolving]
  - Sinusitis [Recovering/Resolving]
  - Psoriasis [Unknown]
